FAERS Safety Report 17908427 (Version 3)
Quarter: 2020Q3

REPORT INFORMATION
  Report Type: Spontaneous
  Country: AU (occurrence: AU)
  Receive Date: 20200617
  Receipt Date: 20200723
  Transmission Date: 20201103
  Serious: Yes (Life-Threatening, Hospitalization, Other)
  Sender: FDA-Public Use
  Company Number: AU-VIFOR (INTERNATIONAL) INC.-VIT-2020-06514

PATIENT
  Age: 57 Year
  Sex: Male
  Weight: 77 kg

DRUGS (14)
  1. SALBUTAMOL [Concomitant]
     Active Substance: ALBUTEROL
     Dosage: 2 PUFFS
     Route: 065
  2. ATORVASTATIN [Concomitant]
     Active Substance: ATORVASTATIN
     Dosage: W
     Route: 065
     Dates: start: 202006
  3. FORMOTEROL [Concomitant]
     Active Substance: FORMOTEROL
     Route: 065
  4. DOCUSATE [Concomitant]
     Active Substance: DOCUSATE
  5. TAPENTADOL [Concomitant]
     Active Substance: TAPENTADOL
     Dosage: MR
     Route: 065
     Dates: start: 202006
  6. FLUTICASONE. [Concomitant]
     Active Substance: FLUTICASONE
     Route: 065
  7. MEGA B [Concomitant]
     Active Substance: VITAMINS
     Route: 065
  8. RENAGEL [Concomitant]
     Active Substance: SEVELAMER HYDROCHLORIDE
  9. MIRCERA [Suspect]
     Active Substance: METHOXY POLYETHYLENE GLYCOL-EPOETIN BETA
     Indication: NEPHROGENIC ANAEMIA
     Route: 042
     Dates: start: 20200602, end: 20200602
  10. BISOPROLOL [Concomitant]
     Active Substance: BISOPROLOL
     Dosage: HALF TABLET MORNING
     Route: 065
  11. ASPIRIN [ACETYLSALICYLIC ACID] [Concomitant]
     Active Substance: ASPIRIN
     Dosage: IN MORNING
     Route: 065
  12. PARACETAMOL [Concomitant]
     Active Substance: ACETAMINOPHEN
     Dosage: AS REQUIRED (PRN)
     Route: 065
  13. OXYCODONE [Concomitant]
     Active Substance: OXYCODONE
     Route: 065
  14. HEPARIN [Concomitant]
     Active Substance: HEPARIN SODIUM
     Indication: DIALYSIS
     Route: 042

REACTIONS (16)
  - Cardiac arrest [Unknown]
  - Pulseless electrical activity [Unknown]
  - Coma scale abnormal [Unknown]
  - Oedema [Unknown]
  - Blood pressure abnormal [Unknown]
  - Unresponsive to stimuli [Unknown]
  - Cyanosis [Unknown]
  - Jaw disorder [Unknown]
  - Dyspnoea [Unknown]
  - Ocular hyperaemia [Unknown]
  - Anaphylactic reaction [Recovering/Resolving]
  - Retching [Unknown]
  - Ventricular fibrillation [Unknown]
  - Foaming at mouth [Unknown]
  - Pulse abnormal [Unknown]
  - Therapy non-responder [Unknown]

NARRATIVE: CASE EVENT DATE: 20200602
